FAERS Safety Report 17988093 (Version 2)
Quarter: 2020Q3

REPORT INFORMATION
  Report Type: Spontaneous
  Country: DE (occurrence: DE)
  Receive Date: 20200707
  Receipt Date: 20200716
  Transmission Date: 20201103
  Serious: Yes (Hospitalization, Other)
  Sender: FDA-Public Use
  Company Number: DE-BRISTOL-MYERS SQUIBB COMPANY-BMS-2020-053866

PATIENT
  Age: 94 Year
  Sex: Female

DRUGS (9)
  1. TRUSOPT [Concomitant]
     Active Substance: DORZOLAMIDE HYDROCHLORIDE
     Indication: GLAUCOMA
     Dosage: 1 DOSAGE FORM (20 MG/ML), QD
     Route: 050
     Dates: start: 20170330
  2. SPIRONOLACTON [Concomitant]
     Active Substance: SPIRONOLACTONE
     Indication: HYPERTENSION
     Dosage: 50 MILLIGRAM, QD
     Route: 048
     Dates: start: 20091123
  3. ELIQUIS [Suspect]
     Active Substance: APIXABAN
     Indication: CEREBROVASCULAR ACCIDENT PROPHYLAXIS
     Dosage: 2.5 MILLIGRAM, BID
     Route: 048
     Dates: start: 20150909, end: 20200617
  4. URAPIDIL [Concomitant]
     Active Substance: URAPIDIL
     Indication: HYPERTENSION
     Dosage: 50 MILLIGRAM, QH
     Route: 042
     Dates: start: 20200617, end: 20200619
  5. TRAMAL RETARD [Concomitant]
     Active Substance: TRAMADOL
     Indication: PAIN
     Dosage: 100 MILLIGRAM, BID
     Route: 048
     Dates: start: 20110207
  6. NOVODIGAL [DIGOXIN] [Concomitant]
     Active Substance: DIGOXIN
     Indication: CARDIAC FAILURE
     Dosage: 0.1 MILLIGRAM, QD
     Route: 065
     Dates: start: 20170330
  7. CARVEDILOL. [Concomitant]
     Active Substance: CARVEDILOL
     Indication: HYPERTENSION
     Dosage: 12.5 MILLIGRAM, QD
     Route: 065
     Dates: start: 20200207
  8. AMLODIPINE [Concomitant]
     Active Substance: AMLODIPINE BESYLATE
     Indication: HYPERTENSION
     Dosage: 5 MILLIGRAM, BID
     Route: 048
     Dates: start: 20200617
  9. NOVALGIN [CAFFEINE;PARACETAMOL;PROPYPHENAZONE] [Concomitant]
     Active Substance: ACETAMINOPHEN\CAFFEINE\PROPYPHENAZONE
     Indication: PAIN
     Dosage: 500 MILLIGRAM, QD
     Route: 048
     Dates: start: 20110207

REACTIONS (4)
  - Subarachnoid haemorrhage [Recovered/Resolved]
  - Tricuspid valve incompetence [Not Recovered/Not Resolved]
  - Subdural haematoma [Not Recovered/Not Resolved]
  - Mitral valve incompetence [Not Recovered/Not Resolved]

NARRATIVE: CASE EVENT DATE: 201603
